FAERS Safety Report 5288741-8 (Version None)
Quarter: 2007Q2

REPORT INFORMATION
  Report Type: 
  Country: None (occurrence: None)
  Receive Date: 20070405
  Receipt Date: 20070402
  Transmission Date: 20071010
  Serious: Yes (Hospitalization)
  Sender: FDA-Public Use
  Company Number: FR-BOEHRINGER INGELHEIM GMBH, GERMANY-2006-FF-01064PF

PATIENT
  Sex: Male
  Weight: 64 kg

DRUGS (7)
  1. SPIRIVA [Suspect]
     Indication: CHRONIC OBSTRUCTIVE PULMONARY DISEASE
     Route: 055
  2. BRONCHODUAL [Concomitant]
     Route: 055
  3. PULMICORT [Concomitant]
     Route: 055
  4. KARDEGIC [Concomitant]
     Route: 048
  5. VERAPAMIL 240 [Concomitant]
     Route: 048
  6. CAPTOPRIL 50 [Concomitant]
     Route: 048
  7. SPIRONOLACTONE 50 [Concomitant]
     Route: 048

REACTIONS (2)
  - MESOTHELIOMA [None]
  - PNEUMOTHORAX [None]
